FAERS Safety Report 5456208-X (Version None)
Quarter: 2007Q3

REPORT INFORMATION
  Report Type: 
  Country: None (occurrence: None)
  Receive Date: 20070918
  Receipt Date: 20070910
  Transmission Date: 20080115
  Serious: Yes (Hospitalization)
  Sender: FDA-Public Use
  Company Number: JP-BRACCO-BEI-006334

PATIENT
  Age: 31 Year
  Sex: Female
  Weight: 58 kg

DRUGS (2)
  1. PROHANCE [Suspect]
     Indication: INDURATION
     Route: 042
     Dates: start: 20060609, end: 20060609
  2. PROHANCE [Suspect]
     Route: 042
     Dates: start: 20060609, end: 20060609

REACTIONS (2)
  - ANAPHYLACTOID REACTION [None]
  - ELECTROCARDIOGRAM QT PROLONGED [None]
